FAERS Safety Report 5416058-7 (Version None)
Quarter: 2007Q3

REPORT INFORMATION
  Report Type: 
  Country: None (occurrence: None)
  Receive Date: 20070815
  Receipt Date: 20070809
  Transmission Date: 20080115
  Serious: Yes (Other)
  Sender: FDA-Public Use
  Company Number: JP-MERCK-0707USA03599

PATIENT
  Age: 11 Year
  Sex: Male

DRUGS (6)
  1. SINGULAIR [Suspect]
     Indication: INFANTILE ASTHMA
     Route: 048
     Dates: start: 20060630, end: 20070614
  2. LONGES [Concomitant]
     Route: 048
  3. DASEN [Concomitant]
     Route: 048
  4. MUCOSOLVAN [Concomitant]
     Route: 048
  5. TAMIFLU [Concomitant]
     Indication: INFLUENZA
     Route: 048
     Dates: start: 20070219, end: 20070220
  6. ALESION [Concomitant]
     Route: 048

REACTIONS (3)
  - INFLUENZA [None]
  - NIGHTMARE [None]
  - PORIOMANIA [None]
